FAERS Safety Report 15056671 (Version 3)
Quarter: 2018Q4

REPORT INFORMATION
  Report Type: Spontaneous
  Country: US (occurrence: US)
  Receive Date: 20180623
  Receipt Date: 20181218
  Transmission Date: 20190204
  Serious: Yes (Other)
  Sender: FDA-Public Use
  Company Number: US-OTSUKA-2018_015735

PATIENT
  Sex: Female

DRUGS (3)
  1. ABILIFY [Suspect]
     Active Substance: ARIPIPRAZOLE
     Indication: BIPOLAR DISORDER
     Dosage: 2-10 MG, QD
     Route: 065
     Dates: start: 200807
  2. ABILIFY [Suspect]
     Active Substance: ARIPIPRAZOLE
     Indication: MAJOR DEPRESSION
  3. ARIPIPRAZOLE. [Concomitant]
     Active Substance: ARIPIPRAZOLE
     Indication: PRODUCT USED FOR UNKNOWN INDICATION
     Dosage: UNK
     Route: 065
     Dates: start: 20150813, end: 20170615

REACTIONS (11)
  - Gambling disorder [Recovered/Resolved]
  - Condition aggravated [Recovered/Resolved]
  - Injury [Unknown]
  - Economic problem [Unknown]
  - Drug dependence [Unknown]
  - Emotional distress [Unknown]
  - Metabolic surgery [Unknown]
  - Mental disorder [Unknown]
  - Eating disorder [Recovered/Resolved]
  - Personal relationship issue [Unknown]
  - Bankruptcy [Unknown]

NARRATIVE: CASE EVENT DATE: 2010
